FAERS Safety Report 4676823-0 (Version None)
Quarter: 2005Q2

REPORT INFORMATION
  Report Type: 
  Country: None (occurrence: None)
  Receive Date: 20050527
  Receipt Date: 20050519
  Transmission Date: 20051028
  Serious: Yes (Life-Threatening, Hospitalization)
  Sender: FDA-Public Use
  Company Number: JP-MERCK-0505USA02770

PATIENT
  Age: 65 Year
  Sex: Male

DRUGS (1)
  1. PRIMAXIN [Suspect]
     Indication: NASOPHARYNGITIS
     Route: 030
     Dates: start: 20050514

REACTIONS (3)
  - ANAPHYLACTIC SHOCK [None]
  - ARTERIOSPASM CORONARY [None]
  - SHOCK [None]
